FAERS Safety Report 12834926 (Version 2)
Quarter: 2016Q4

REPORT INFORMATION
  Report Type: Spontaneous
  Country: SE (occurrence: SE)
  Receive Date: 20161010
  Receipt Date: 20161010
  Transmission Date: 20170207
  Serious: Yes (Hospitalization)
  Sender: FDA-Public Use
  Company Number: SE-009507513-1610SWE003529

PATIENT
  Age: 72 Year
  Sex: Female

DRUGS (1)
  1. MONTELUKAST SODIUM. [Suspect]
     Active Substance: MONTELUKAST SODIUM
     Route: 048

REACTIONS (4)
  - Dyspnoea [Unknown]
  - Sleep disorder [Unknown]
  - Dyspepsia [Unknown]
  - Chest discomfort [Unknown]
